FAERS Safety Report 17800168 (Version 2)
Quarter: 2020Q3

REPORT INFORMATION
  Report Type: Report from Study
  Country: None (occurrence: US)
  Receive Date: 20200519
  Receipt Date: 20200803
  Transmission Date: 20201102
  Serious: Yes (Other)
  Sender: FDA-Public Use
  Company Number: US-ABBVIE-20K-163-3278295-00

PATIENT
  Age: 72 Year
  Sex: Female
  Weight: 49.94 kg

DRUGS (9)
  1. MELOXICAM. [Interacting]
     Active Substance: MELOXICAM
     Indication: PRODUCT USED FOR UNKNOWN INDICATION
     Route: 065
  2. TERBINAFINE. [Concomitant]
     Active Substance: TERBINAFINE
     Indication: PRODUCT USED FOR UNKNOWN INDICATION
  3. PENTOXYFYLLINE [Concomitant]
     Active Substance: PENTOXIFYLLINE
     Indication: PRODUCT USED FOR UNKNOWN INDICATION
  4. HUMIRA [Suspect]
     Active Substance: ADALIMUMAB
     Indication: RHEUMATOID ARTHRITIS
     Route: 058
     Dates: start: 2004
  5. HYDROXYCHLOROQUINE [Concomitant]
     Active Substance: HYDROXYCHLOROQUINE
     Indication: PRODUCT USED FOR UNKNOWN INDICATION
  6. AMLODIPINE [Concomitant]
     Active Substance: AMLODIPINE BESYLATE
     Indication: PRODUCT USED FOR UNKNOWN INDICATION
  7. LEVOTHYROXINE. [Concomitant]
     Active Substance: LEVOTHYROXINE
     Indication: PRODUCT USED FOR UNKNOWN INDICATION
  8. HUMIRA [Suspect]
     Active Substance: ADALIMUMAB
     Route: 058
  9. SIMVASTATIN. [Concomitant]
     Active Substance: SIMVASTATIN
     Indication: PRODUCT USED FOR UNKNOWN INDICATION

REACTIONS (11)
  - Loss of consciousness [Recovered/Resolved]
  - Impaired healing [Unknown]
  - Nausea [Recovered/Resolved]
  - Hypersensitivity [Recovered/Resolved]
  - Blister [Unknown]
  - Dizziness [Recovered/Resolved]
  - Influenza [Recovered/Resolved]
  - Drug interaction [Recovered/Resolved]
  - Onychoclasis [Not Recovered/Not Resolved]
  - Vomiting [Recovered/Resolved]
  - Onychomycosis [Recovering/Resolving]

NARRATIVE: CASE EVENT DATE: 202002
